FAERS Safety Report 10068515 (Version 1)
Quarter: 2014Q2

REPORT INFORMATION
  Report Type: Report from Study
  Country: US (occurrence: US)
  Receive Date: 20140409
  Receipt Date: 20140409
  Transmission Date: 20141212
  Serious: Yes (Life-Threatening, Hospitalization, Other)
  Sender: FDA-Public Use
  Company Number: US-BAYER-2014-049738

PATIENT
  Age: 91 Year
  Sex: Female

DRUGS (3)
  1. ASPIRIN [Suspect]
     Indication: CORONARY ARTERY DISEASE
  2. ASPIRIN [Suspect]
     Indication: ANTIPLATELET THERAPY
  3. ANTIVENOM [Suspect]
     Indication: SNAKE BITE
     Dosage: 6 VIALS, INITIAL LOADING

REACTIONS (4)
  - Lower gastrointestinal haemorrhage [Recovered/Resolved]
  - Coagulopathy [Recovered/Resolved]
  - Anaphylactic reaction [Recovered/Resolved]
  - Delirium [None]
